FAERS Safety Report 7665218-3 (Version None)
Quarter: 2011Q3

REPORT INFORMATION
  Report Type: 
  Country: None (occurrence: None)
  Receive Date: 20110806
  Receipt Date: 20110314
  Transmission Date: 20111222
  Serious: No
  Sender: FDA-Public Use
  Company Number: US-ABBOTT-11P-163-0711189-00

PATIENT
  Sex: Female
  Weight: 56.75 kg

DRUGS (2)
  1. NIASPAN [Suspect]
     Indication: BLOOD CHOLESTEROL INCREASED
     Dates: start: 20101201
  2. ASPIRIN [Concomitant]
     Indication: PROPHYLAXIS
     Dosage: 30 MINUTES BEFORE NIASPAN
     Dates: start: 20101201

REACTIONS (2)
  - ERYTHEMA [None]
  - PRURITUS [None]
